FAERS Safety Report 20961555 (Version 1)
Quarter: 2022Q2

REPORT INFORMATION
  Report Type: Spontaneous
  Country: US (occurrence: None)
  Receive Date: 20220614
  Receipt Date: 20220614
  Transmission Date: 20220721
  Serious: No
  Sender: FDA-Public Use
  Company Number: None

PATIENT
  Sex: Female

DRUGS (1)
  1. ENBREL [Suspect]
     Active Substance: ETANERCEPT
     Indication: Psoriatic arthropathy
     Dosage: 50MG/ML EVERY 7 DAYS SUBCUTANEOUS?
     Route: 058
     Dates: end: 20220613

REACTIONS (2)
  - Adverse drug reaction [None]
  - Therapy cessation [None]
